FAERS Safety Report 23893272 (Version 1)
Quarter: 2024Q2

REPORT INFORMATION
  Report Type: Spontaneous
  Country: US (occurrence: US)
  Receive Date: 20240524
  Receipt Date: 20240524
  Transmission Date: 20240716
  Serious: Yes (Hospitalization)
  Sender: FDA-Public Use
  Company Number: US-BRISTOL-MYERS SQUIBB COMPANY-2024-080663

PATIENT
  Age: 51 Year
  Sex: Female
  Weight: 90.9 kg

DRUGS (9)
  1. OPDIVO [Suspect]
     Active Substance: NIVOLUMAB
     Indication: Breast cancer female
     Dosage: DOSE : OPDIVO: 240 MG FREQ : EVERY 2 WEEKS
     Route: 042
     Dates: start: 20231012
  2. OPDIVO [Suspect]
     Active Substance: NIVOLUMAB
     Indication: Breast cancer female
  3. YERVOY [Suspect]
     Active Substance: IPILIMUMAB
     Indication: Breast cancer female
     Dosage: DOSE : YERVOY 250 MG;     FREQ : EVERY 3 WEEKS; STRENGTH 200 MG VIAL AND 50 MG VIAL
     Route: 042
     Dates: start: 20231012
  4. YERVOY [Suspect]
     Active Substance: IPILIMUMAB
     Indication: Breast cancer female
  5. LEXAPRO [Concomitant]
     Active Substance: ESCITALOPRAM OXALATE
     Indication: Product used for unknown indication
  6. LISINOPRIL [Concomitant]
     Active Substance: LISINOPRIL
     Indication: Product used for unknown indication
  7. HYDROCHLOROTHIAZIDE [Concomitant]
     Active Substance: HYDROCHLOROTHIAZIDE
     Indication: Product used for unknown indication
  8. MEMANTINE HYDROCHLORIDE [Concomitant]
     Active Substance: MEMANTINE HYDROCHLORIDE
     Indication: Product used for unknown indication
  9. TRAMADOL [Concomitant]
     Active Substance: TRAMADOL\TRAMADOL HYDROCHLORIDE
     Indication: Product used for unknown indication

REACTIONS (2)
  - Hospitalisation [Unknown]
  - Off label use [Unknown]
